FAERS Safety Report 14861977 (Version 3)
Quarter: 2018Q2

REPORT INFORMATION
  Report Type: Report from Study
  Country: CA (occurrence: CA)
  Receive Date: 20180508
  Receipt Date: 20180608
  Transmission Date: 20180711
  Serious: Yes (Other)
  Sender: FDA-Public Use
  Company Number: CA-TAKEDA-2017TUS022266

PATIENT
  Age: 62 Year
  Sex: Female

DRUGS (12)
  1. SANDOZ-METOPROLOL [Concomitant]
     Dosage: UNK
  2. JANUMET [Concomitant]
     Active Substance: METFORMIN HYDROCHLORIDE\SITAGLIPTIN PHOSPHATE
     Dosage: UNK
  3. IRBESARTAN. [Concomitant]
     Active Substance: IRBESARTAN
     Dosage: UNK
  4. AMOXIL                             /00249601/ [Concomitant]
     Active Substance: AMOXICILLIN
     Dosage: UNK
  5. APO-AMITRIPTYLINE [Concomitant]
     Active Substance: AMITRIPTYLINE HYDROCHLORIDE
     Dosage: UNK
  6. VEDOLIZUMAB [Suspect]
     Active Substance: VEDOLIZUMAB
     Indication: CROHN^S DISEASE
     Dosage: 300 MG, UNK
     Route: 042
     Dates: start: 20171006
  7. ASA [Concomitant]
     Active Substance: ASPIRIN
     Dosage: 80 MG, UNK
  8. SOLIFENACIN [Concomitant]
     Active Substance: SOLIFENACIN
     Dosage: UNK
  9. D-TABS [Concomitant]
     Active Substance: CHOLECALCIFEROL
     Dosage: UNK
  10. SYNTHROID [Concomitant]
     Active Substance: LEVOTHYROXINE SODIUM
     Dosage: UNK
  11. ZOPICLONE [Concomitant]
     Active Substance: ZOPICLONE
     Dosage: UNK
  12. ATORVASTATIN [Concomitant]
     Active Substance: ATORVASTATIN
     Dosage: UNK

REACTIONS (3)
  - Cystitis [Not Recovered/Not Resolved]
  - Bladder neoplasm [Unknown]
  - Spinal operation [Unknown]
